FAERS Safety Report 8192977-6 (Version None)
Quarter: 2012Q1

REPORT INFORMATION
  Report Type: 
  Country: None (occurrence: None)
  Receive Date: 20120308
  Receipt Date: 20120223
  Transmission Date: 20120608
  Serious: Yes (Other)
  Sender: FDA-Public Use
  Company Number: JP-AMGEN-JPNSP2011060911

PATIENT
  Age: 76 Year
  Sex: Male
  Weight: 58 kg

DRUGS (18)
  1. MUCOSOLVAN [Concomitant]
     Dosage: UNK
  2. MARZULENE ES                       /00518301/ [Concomitant]
     Dosage: UNK
  3. EPINASTINE HYDROCHLORIDE [Concomitant]
     Dosage: UNK
  4. LOSARTAN POTASSIUM [Concomitant]
     Dosage: UNK
  5. MARZULENE ES [Concomitant]
  6. THEO-DUR [Concomitant]
     Dosage: UNK
     Dates: start: 19850101
  7. LOSARTAN POTASSIUM [Concomitant]
     Dosage: UNK
     Dates: start: 19850101
  8. PREDNISOLONE [Concomitant]
     Dosage: UNK
  9. EPINASTINE HYDROCHLORIDE [Concomitant]
     Dosage: UNK
     Dates: start: 19850101
  10. ENBREL [Suspect]
     Indication: RHEUMATOID ARTHRITIS
     Dosage: 25 MG, UNK
     Route: 058
     Dates: start: 20111102
  11. ENBREL [Suspect]
     Dosage: 25 MG, 2X/WEEK
     Route: 058
     Dates: start: 20110725
  12. LOXONIN [Concomitant]
     Dosage: UNK
     Dates: start: 19850101
  13. ONE-ALPHA [Concomitant]
     Dosage: UNK
  14. MUCOSTA [Concomitant]
     Dosage: UNK
  15. MUCOSOLVAN [Concomitant]
     Dosage: UNK
     Dates: start: 19850101
  16. THEO-DUR [Concomitant]
     Dosage: UNK
  17. MEPTIN [Concomitant]
     Dosage: UNK
  18. PREDNISOLONE [Concomitant]
     Dosage: UNK
     Dates: start: 19850101

REACTIONS (1)
  - LOSS OF CONSCIOUSNESS [None]
